FAERS Safety Report 6396508-2 (Version None)
Quarter: 2009Q4

REPORT INFORMATION
  Report Type: 
  Country: None (occurrence: None)
  Receive Date: 20091012
  Receipt Date: 20091001
  Transmission Date: 20100525
  Serious: Yes (Hospitalization, Other)
  Sender: FDA-Public Use
  Company Number: US-AMGEN-QUU365840

PATIENT
  Sex: Female
  Weight: 59.9 kg

DRUGS (2)
  1. ENBREL [Suspect]
     Indication: RHEUMATOID ARTHRITIS
     Route: 058
     Dates: start: 19991101
  2. PLAQUENIL [Concomitant]
     Route: 048

REACTIONS (2)
  - JOINT ARTHROPLASTY [None]
  - RHEUMATOID ARTHRITIS [None]
